FAERS Safety Report 10525827 (Version 2)
Quarter: 2014Q4

REPORT INFORMATION
  Report Type: Report from Study
  Country: CZ (occurrence: CZ)
  Receive Date: 20141017
  Receipt Date: 20141111
  Transmission Date: 20150528
  Serious: Yes (Death, Other)
  Sender: FDA-Public Use
  Company Number: PHHY2014CZ134325

PATIENT
  Age: 67 Year
  Sex: Male

DRUGS (2)
  1. AFINITOR [Suspect]
     Active Substance: EVEROLIMUS
     Dosage: 5 MG, QD
     Route: 065
     Dates: start: 20120515, end: 20130918
  2. AFINITOR [Suspect]
     Active Substance: EVEROLIMUS
     Indication: METASTATIC RENAL CELL CARCINOMA
     Dosage: 10 MG, QD
     Route: 065
     Dates: start: 20120418, end: 20120504

REACTIONS (3)
  - Lung neoplasm [Unknown]
  - Metastatic renal cell carcinoma [Fatal]
  - Second primary malignancy [Unknown]

NARRATIVE: CASE EVENT DATE: 20140705
